APPROVED DRUG PRODUCT: BETIMOL
Active Ingredient: TIMOLOL
Strength: 0.5%
Dosage Form/Route: SOLUTION/DROPS;OPHTHALMIC
Application: N020439 | Product #002 | TE Code: AT
Applicant: THEA PHARMA INC
Approved: Mar 31, 1995 | RLD: Yes | RS: Yes | Type: RX